FAERS Safety Report 20185278 (Version 1)
Quarter: 2021Q4

REPORT INFORMATION
  Report Type: Spontaneous
  Country: US (occurrence: US)
  Receive Date: 20211215
  Receipt Date: 20211215
  Transmission Date: 20220303
  Serious: Yes (Death, Life-Threatening, Hospitalization, Other)
  Sender: FDA-Public Use
  Company Number: US-MACLEODS PHARMACEUTICALS US LTD-MAC2021033676

PATIENT

DRUGS (4)
  1. TENOFOVIR [Interacting]
     Active Substance: TENOFOVIR
     Indication: Antiretroviral therapy
     Dosage: UNK
     Route: 065
  2. DIDANOSINE [Interacting]
     Active Substance: DIDANOSINE
     Indication: Antiretroviral therapy
     Dosage: 400 MILLIGRAM, QD
     Route: 065
  3. AMPRENAVIR [Concomitant]
     Active Substance: AMPRENAVIR
     Indication: Antiretroviral therapy
     Dosage: UNK
     Route: 065
  4. RITONAVIR [Concomitant]
     Active Substance: RITONAVIR
     Indication: Antiretroviral therapy
     Dosage: UNK
     Route: 065

REACTIONS (7)
  - Lactic acidosis [Fatal]
  - Acute kidney injury [Fatal]
  - Hypotension [Unknown]
  - Haemodynamic instability [Unknown]
  - Mitochondrial toxicity [Unknown]
  - Drug interaction [Unknown]
  - Neuropathy peripheral [Recovered/Resolved]
